FAERS Safety Report 21766819 (Version 2)
Quarter: 2023Q1

REPORT INFORMATION
  Report Type: Spontaneous
  Country: US (occurrence: US)
  Receive Date: 20221222
  Receipt Date: 20230113
  Transmission Date: 20230417
  Serious: Yes (Hospitalization)
  Sender: FDA-Public Use
  Company Number: US-TEVA-2022-US-2837428

PATIENT
  Age: 39 Year
  Sex: Male

DRUGS (1)
  1. CISPLATIN [Suspect]
     Active Substance: CISPLATIN
     Indication: Small cell lung cancer
     Dosage: 80 MG/M2 X 1
     Route: 065

REACTIONS (3)
  - Renal salt-wasting syndrome [Recovered/Resolved]
  - Orthostatic hypotension [Unknown]
  - Dizziness [Unknown]
